FAERS Safety Report 22163250 (Version 1)
Quarter: 2023Q2

REPORT INFORMATION
  Report Type: Spontaneous
  Country: FR (occurrence: FR)
  Receive Date: 20230401
  Receipt Date: 20230401
  Transmission Date: 20230721
  Serious: Yes (Death, Life-Threatening, Hospitalization)
  Sender: FDA-Public Use
  Company Number: None

PATIENT
  Age: 11 Day
  Sex: Female

DRUGS (5)
  1. VANCOMYCIN [Suspect]
     Active Substance: VANCOMYCIN
     Indication: Foetal exposure during pregnancy
     Dosage: UNK
     Route: 064
     Dates: start: 20221231, end: 20221231
  2. VANCOMYCIN [Suspect]
     Active Substance: VANCOMYCIN
     Dosage: UNK
     Route: 064
     Dates: start: 20230102, end: 20230116
  3. GENTAMICIN [Suspect]
     Active Substance: GENTAMICIN
     Indication: Foetal exposure during pregnancy
     Dosage: UNK
     Route: 064
     Dates: start: 20221231, end: 20221231
  4. GENTAMICIN [Suspect]
     Active Substance: GENTAMICIN
     Dosage: UNK
     Route: 064
     Dates: start: 20230102, end: 20230102
  5. LINEZOLID [Suspect]
     Active Substance: LINEZOLID
     Indication: Foetal exposure during pregnancy
     Dosage: (MATERNAL DOSE: 10 MG/KG/ DOSE TOUTES LES 8H : 3 DOSES)
     Route: 064
     Dates: start: 20230101, end: 20230102

REACTIONS (1)
  - Necrotising enterocolitis neonatal [Fatal]

NARRATIVE: CASE EVENT DATE: 20230103
